FAERS Safety Report 16539329 (Version 1)
Quarter: 2019Q3

REPORT INFORMATION
  Report Type: Spontaneous
  Country: IN (occurrence: IN)
  Receive Date: 20190708
  Receipt Date: 20190708
  Transmission Date: 20191004
  Serious: Yes (Hospitalization, Other)
  Sender: FDA-Public Use
  Company Number: IN-AMNEAL PHARMACEUTICALS-2019AMN00754

PATIENT
  Age: 55 Year
  Sex: Male

DRUGS (2)
  1. PHENYTOIN SODIUM. [Suspect]
     Active Substance: PHENYTOIN SODIUM
     Indication: SEIZURE
     Dosage: 400 MG PER DAY
     Route: 048
  2. PHENYTOIN SODIUM. [Suspect]
     Active Substance: PHENYTOIN SODIUM
     Dosage: 600 UNK
     Route: 042

REACTIONS (2)
  - Hyperammonaemic encephalopathy [Recovered/Resolved]
  - Toxicity to various agents [Recovered/Resolved]
